FAERS Safety Report 7967339-4 (Version None)
Quarter: 2011Q4

REPORT INFORMATION
  Report Type: 
  Country: None (occurrence: None)
  Receive Date: 20111209
  Receipt Date: 20111201
  Transmission Date: 20120403
  Serious: Yes (Hospitalization, Other)
  Sender: FDA-Public Use
  Company Number: US-JNJFOC-20111201677

PATIENT
  Sex: Male
  Weight: 77.11 kg

DRUGS (9)
  1. RISPERDAL CONSTA [Suspect]
     Route: 030
     Dates: start: 20110101, end: 20110101
  2. CLOZAPINE [Concomitant]
     Indication: SCHIZOAFFECTIVE DISORDER
     Route: 048
  3. INVEGA SUSTENNA [Suspect]
     Indication: SCHIZOAFFECTIVE DISORDER
     Route: 030
     Dates: start: 20100101, end: 20110101
  4. RISPERDAL CONSTA [Suspect]
     Route: 030
     Dates: start: 20060101, end: 20100101
  5. RISPERDAL [Suspect]
     Indication: SCHIZOAFFECTIVE DISORDER
     Route: 065
  6. BUSPAR [Concomitant]
     Indication: SCHIZOAFFECTIVE DISORDER
     Route: 048
  7. RISPERDAL CONSTA [Suspect]
     Indication: SCHIZOAFFECTIVE DISORDER
     Route: 030
     Dates: start: 20110101, end: 20110901
  8. RISPERDAL [Suspect]
     Route: 065
  9. RISPERDAL CONSTA [Suspect]
     Route: 030
     Dates: start: 20110901

REACTIONS (3)
  - DRUG INEFFECTIVE [None]
  - DELUSION [None]
  - AGGRESSION [None]
